FAERS Safety Report 7403081-6 (Version None)
Quarter: 2011Q2

REPORT INFORMATION
  Report Type: 
  Country: None (occurrence: None)
  Receive Date: 20110408
  Receipt Date: 20110329
  Transmission Date: 20111010
  Serious: Yes (Other)
  Sender: FDA-Public Use
  Company Number: CA-SANOFI-AVENTIS-2011SA020760

PATIENT
  Age: 64 Year
  Sex: Male
  Weight: 70.5 kg

DRUGS (31)
  1. INVESTIGATIONAL DRUG [Suspect]
     Route: 042
     Dates: start: 20110221, end: 20110221
  2. DIOVOL [Concomitant]
     Indication: NAUSEA
     Dosage: 1 TO 2 TABLETS, AS REQUIRED
     Route: 048
     Dates: start: 20110101
  3. ERGOCALCIFEROL [Concomitant]
     Dosage: DOSE:2000 UNIT(S)
     Route: 048
     Dates: start: 20100201
  4. PARACETAMOL [Concomitant]
     Indication: PROPHYLAXIS
     Dosage: 650 MG EVERY 4 TO 6 HOURS AS NEEDED
     Route: 048
     Dates: start: 20110216, end: 20110223
  5. ALL OTHER THERAPEUTIC PRODUCTS [Concomitant]
     Dates: start: 20070101
  6. HYDROCHLOROTHIAZIDE [Concomitant]
     Indication: HYPERTENSION
     Route: 048
     Dates: start: 20110201, end: 20110309
  7. GOSERELIN [Concomitant]
     Indication: PROSTATE CANCER
  8. CALCIUM [Concomitant]
     Indication: PROSTATE CANCER
     Route: 048
     Dates: start: 20100201
  9. PARACETAMOL [Concomitant]
     Indication: CHEST PAIN
     Dosage: 650 MG EVERY 4 TO 6 HOURS AS NEEDED
     Route: 048
     Dates: start: 20110216, end: 20110223
  10. PANTOPRAZOLE [Concomitant]
     Route: 048
     Dates: start: 20110220
  11. DOCETAXEL [Suspect]
     Indication: PROSTATE CANCER
     Route: 041
     Dates: start: 20110224, end: 20110224
  12. METOCLOPRAMIDE HYDROCHLORIDE [Concomitant]
     Indication: NAUSEA
  13. PARACETAMOL [Concomitant]
     Dates: start: 20110224
  14. PARACETAMOL [Concomitant]
     Dates: start: 20110224
  15. DIPHENHYDRAMINE HYDROCHLORIDE [Concomitant]
     Indication: RASH
     Dosage: 25 TO 50 MG EVERY 4 HOURS AS NEEDED
     Route: 048
     Dates: start: 20110220, end: 20110223
  16. PANTOPRAZOLE [Concomitant]
     Indication: NAUSEA
     Route: 048
     Dates: start: 20110220
  17. ESOMEPRAZOLE MAGNESIUM [Concomitant]
     Indication: NAUSEA
     Route: 048
     Dates: start: 20110210, end: 20110219
  18. ESOMEPRAZOLE MAGNESIUM [Concomitant]
     Route: 048
     Dates: start: 20110210, end: 20110219
  19. DEXAMETHASONE [Concomitant]
     Indication: PROPHYLAXIS
     Route: 048
     Dates: start: 20110223, end: 20110225
  20. INVESTIGATIONAL DRUG [Suspect]
     Route: 042
     Dates: start: 20110224, end: 20110224
  21. PREDNISONE [Suspect]
     Indication: PROSTATE CANCER
     Route: 048
     Dates: start: 20110224
  22. DEXAMETHASONE [Concomitant]
     Indication: PREMEDICATION
     Route: 048
     Dates: start: 20110223, end: 20110225
  23. FISH OIL [Concomitant]
     Indication: ROUTINE HEALTH MAINTENANCE
     Dosage: 1 IN 1 DAY
     Route: 048
     Dates: start: 20100201
  24. GLUTAMIC ACID [Concomitant]
     Route: 048
     Dates: start: 20100201
  25. PARACETAMOL [Concomitant]
     Indication: PREMEDICATION
     Dosage: 650 MG EVERY 4 TO 6 HOURS AS NEEDED
     Route: 048
     Dates: start: 20110216, end: 20110223
  26. INVESTIGATIONAL DRUG [Suspect]
     Indication: PROSTATE CANCER
     Route: 042
     Dates: start: 20110216, end: 20110216
  27. ZOLEDRONIC ACID [Concomitant]
     Dates: start: 20110124
  28. DOCETAXEL [Suspect]
     Route: 041
     Dates: start: 20110224, end: 20110224
  29. MAGNESIUM [Concomitant]
     Indication: PROSTATE CANCER
     Route: 048
     Dates: start: 20100201
  30. PARACETAMOL [Concomitant]
     Dates: start: 20110224
  31. TADALAFIL [Concomitant]
     Indication: ERECTILE DYSFUNCTION
     Route: 048
     Dates: start: 20070401

REACTIONS (1)
  - CEREBRAL ISCHAEMIA [None]
